FAERS Safety Report 4479617-4 (Version None)
Quarter: 2004Q4

REPORT INFORMATION
  Report Type: 
  Country: None (occurrence: None)
  Receive Date: 20041020
  Receipt Date: 20041011
  Transmission Date: 20050328
  Serious: Yes (Hospitalization)
  Sender: FDA-Public Use
  Company Number: CN-MERCK-0410CHN00022

PATIENT
  Age: 58 Year
  Sex: Female

DRUGS (1)
  1. VIOXX [Suspect]
     Indication: OSTEOPOROSIS
     Route: 048
     Dates: start: 20040829, end: 20040831

REACTIONS (2)
  - APHASIA [None]
  - ELECTROCARDIOGRAM ABNORMAL [None]
